FAERS Safety Report 10908796 (Version 1)
Quarter: 2015Q1

REPORT INFORMATION
  Report Type: Report from Study
  Country: DE (occurrence: DE)
  Receive Date: 20150312
  Receipt Date: 20150312
  Transmission Date: 20150721
  Serious: Yes (Hospitalization, Other)
  Sender: FDA-Public Use
  Company Number: DE-ABBVIE-15K-062-1356567-00

PATIENT
  Age: 49 Year
  Sex: Female
  Weight: 78 kg

DRUGS (3)
  1. HUMIRA [Suspect]
     Active Substance: ADALIMUMAB
     Route: 058
     Dates: end: 201411
  2. HUMIRA [Suspect]
     Active Substance: ADALIMUMAB
     Dosage: WEEK TWO
     Route: 058
     Dates: start: 201409, end: 201409
  3. HUMIRA [Suspect]
     Active Substance: ADALIMUMAB
     Indication: CROHN^S DISEASE
     Dosage: WEEK ZERO
     Route: 058
     Dates: start: 20140902, end: 20140902

REACTIONS (3)
  - Gastrointestinal infection [Unknown]
  - Crohn^s disease [Recovered/Resolved]
  - Intestinal stenosis [Unknown]

NARRATIVE: CASE EVENT DATE: 20141110
